FAERS Safety Report 5621353-2 (Version None)
Quarter: 2008Q1

REPORT INFORMATION
  Report Type: 
  Country: None (occurrence: None)
  Receive Date: 20080129
  Receipt Date: 20080114
  Transmission Date: 20080703
  Serious: Yes (Death)
  Sender: FDA-Public Use
  Company Number: B0503165A

PATIENT
  Age: 82 Year
  Sex: Male

DRUGS (9)
  1. WARFARIN SODIUM (FORMULATION UNKNOWN) (GERNERIC) (WARFARIN SODIUM) [Suspect]
     Dosage: ORAL
     Route: 048
  2. CARVEDILOL [Suspect]
     Dosage: ORAL
     Route: 048
  3. CARDIAC GLYCOSIDE (FORMULATION UNKNOWN) (CARDIAC GLYCOSIDE) [Suspect]
     Dosage: ORAL
     Route: 048
  4. POTASSIUM SALT (FORMULATION UNKNOWN) (POTASSIUM SALT) [Suspect]
     Dosage: ORAL
     Route: 048
  5. FERROUS SULFATE TAB [Suspect]
     Dosage: ORAL
     Route: 048
  6. FUROSEMIDE [Suspect]
     Dosage: ORAL
     Route: 048
  7. AMIODARONE HCL [Suspect]
     Dosage: ORAL
     Route: 048
  8. RAMIPRIL [Suspect]
     Dosage: ORAL
     Route: 048
  9. FLUOXETINE [Suspect]
     Dosage: ORAL
     Route: 048

REACTIONS (1)
  - CARDIOACTIVE DRUG LEVEL ABOVE THERAPEUTIC [None]
